FAERS Safety Report 5604797-4 (Version None)
Quarter: 2008Q1

REPORT INFORMATION
  Report Type: 
  Country: None (occurrence: None)
  Receive Date: 20080128
  Receipt Date: 20080115
  Transmission Date: 20080703
  Serious: Yes (Death, Hospitalization)
  Sender: FDA-Public Use
  Company Number: CH-ROCHE-535963

PATIENT
  Age: 74 Year
  Sex: Female

DRUGS (3)
  1. CAPECITABINE [Suspect]
     Dosage: FORM: FILM COATED TABLET. STRENGTH: 150MG OR 500MG.
     Route: 048
     Dates: start: 20071120, end: 20071204
  2. GEMCITABINE [Suspect]
     Dosage: STRENGTH: 200MG OR 1000MG.
     Route: 042
     Dates: start: 20071120, end: 20071127
  3. OXALIPLATIN [Suspect]
     Dosage: STRENGTH: 50MG OR 100MG
     Route: 042
     Dates: start: 20071120, end: 20071120

REACTIONS (4)
  - ARRHYTHMIA SUPRAVENTRICULAR [None]
  - DIARRHOEA [None]
  - ENTEROBACTER SEPSIS [None]
  - SYNCOPE [None]
